FAERS Safety Report 8245201-X (Version None)
Quarter: 2012Q1

REPORT INFORMATION
  Report Type: 
  Country: None (occurrence: None)
  Receive Date: 20120329
  Receipt Date: 20120312
  Transmission Date: 20120608
  Serious: Yes (Death, Hospitalization, Other)
  Sender: FDA-Public Use
  Company Number: RU-ROCHE-1045426

PATIENT
  Age: 72 Year
  Sex: Female
  Weight: 74 kg

DRUGS (5)
  1. CLOPIDOGREL [Concomitant]
  2. ENOXAPARIN SODIUM [Concomitant]
     Route: 058
  3. ACTIVASE [Suspect]
     Indication: ACUTE MYOCARDIAL INFARCTION
     Dosage: ONCE
     Route: 042
     Dates: start: 20120116, end: 20120116
  4. ACTIVASE [Suspect]
     Indication: CORONARY ARTERY DISEASE
  5. ASPIRIN [Concomitant]

REACTIONS (4)
  - CEREBRAL HAEMORRHAGE [None]
  - BRAIN OEDEMA [None]
  - CARDIAC TAMPONADE [None]
  - MYOCARDIAL RUPTURE [None]
